FAERS Safety Report 4288725-2 (Version None)
Quarter: 2004Q1

REPORT INFORMATION
  Report Type: 
  Country: None (occurrence: None)
  Receive Date: 20040130
  Receipt Date: 20031027
  Transmission Date: 20041129
  Serious: Yes (Other)
  Sender: FDA-Public Use
  Company Number: WAES 0310USA02908

PATIENT
  Age: 45 Year
  Sex: Female
  Weight: 60.3284 kg

DRUGS (5)
  1. EMEND [Suspect]
     Indication: CHEMOTHERAPY
     Dosage: 125 MG/1X/PO
     Route: 048
     Dates: start: 20030819, end: 20030819
  2. EMEND [Suspect]
     Indication: PROPHYLAXIS
     Dosage: 125 MG/1X/PO
     Route: 048
     Dates: start: 20030819, end: 20030819
  3. EMEND [Suspect]
     Indication: CHEMOTHERAPY
     Dosage: 80 MG/DAILY/PO
     Route: 048
     Dates: start: 20030820, end: 20030821
  4. EMEND [Suspect]
     Indication: PROPHYLAXIS
     Dosage: 80 MG/DAILY/PO
     Route: 048
     Dates: start: 20030820, end: 20030821
  5. ANTINEOPLASTIC (UNSPECIFIED) [Concomitant]

REACTIONS (5)
  - DIARRHOEA [None]
  - DIZZINESS [None]
  - HEADACHE [None]
  - NAUSEA [None]
  - VOMITING [None]
